FAERS Safety Report 7216533-9 (Version None)
Quarter: 2011Q1

REPORT INFORMATION
  Report Type: 
  Country: None (occurrence: None)
  Receive Date: 20110109
  Receipt Date: 20101217
  Transmission Date: 20110831
  Serious: No
  Sender: FDA-Public Use
  Company Number: US-B.I. PHARMACEUTICALS,INC./RIDGEFIELD-2010-BP-15085BP

PATIENT
  Sex: Female

DRUGS (5)
  1. ALLOPURINOL [Concomitant]
     Indication: GOUT
     Route: 048
  2. SPIRIVA [Suspect]
     Dosage: 18 MCG
     Route: 055
     Dates: start: 20090701
  3. REVATIO [Concomitant]
     Indication: PULMONARY HYPERTENSION
     Route: 048
  4. WATER PILLS [Concomitant]
     Indication: HYPERTENSION
     Route: 048
  5. POTASSIUM [Concomitant]
     Route: 048

REACTIONS (3)
  - INCREASED UPPER AIRWAY SECRETION [None]
  - EPISTAXIS [None]
  - PRURITUS [None]
